FAERS Safety Report 4480988-3 (Version None)
Quarter: 2004Q4

REPORT INFORMATION
  Report Type: 
  Country: None (occurrence: None)
  Receive Date: 20041019
  Receipt Date: 20041019
  Transmission Date: 20050328
  Serious: Yes (Life-Threatening)
  Sender: FDA-Public Use
  Company Number: None

PATIENT
  Age: 65 Year
  Sex: Female
  Weight: 61.2356 kg

DRUGS (2)
  1. CYTOXAN [Suspect]
     Indication: LYMPHOMA
     Dosage: 390 MG IV D 1,2,3
     Route: 042
     Dates: start: 20040908, end: 20040910
  2. FLUDARA [Suspect]
     Indication: LYMPHOMA
     Dosage: 39 MG IV D 1,2 , 3
     Route: 042
     Dates: start: 20040908, end: 20040910

REACTIONS (9)
  - COMA [None]
  - CONFUSIONAL STATE [None]
  - DEHYDRATION [None]
  - FALL [None]
  - NAUSEA [None]
  - PANCYTOPENIA [None]
  - PYREXIA [None]
  - STUPOR [None]
  - VOMITING [None]
